FAERS Safety Report 18603119 (Version 2)
Quarter: 2020Q4

REPORT INFORMATION
  Report Type: Spontaneous
  Country: US (occurrence: US)
  Receive Date: 20201210
  Receipt Date: 20201228
  Transmission Date: 20210114
  Serious: No
  Sender: FDA-Public Use
  Company Number: US-009507513-2012USA001077

PATIENT
  Age: 60 Year
  Sex: Male

DRUGS (4)
  1. ASMANEX [Suspect]
     Active Substance: MOMETASONE FUROATE
     Indication: ASTHMA
     Dosage: 1 INHALATION EVERY NIGHT, INHALE BY MOUTH
     Dates: start: 20201122
  2. ASMANEX [Suspect]
     Active Substance: MOMETASONE FUROATE
     Dosage: 1 INHALATION EVERY NIGHT, INHALE BY MOUTH
     Dates: start: 20201123
  3. ASMANEX [Suspect]
     Active Substance: MOMETASONE FUROATE
     Indication: ASTHMA
     Dosage: 1 INHALATION EVERY NIGHT, INHALE BY MOUTH
     Dates: start: 2020
  4. ASMANEX [Suspect]
     Active Substance: MOMETASONE FUROATE
     Indication: ASTHMA
     Dosage: INHALE, BY MOUTH
     Dates: start: 201012

REACTIONS (7)
  - Poor quality device used [Unknown]
  - No adverse event [Unknown]
  - Accidental exposure to product [Unknown]
  - Exposure via skin contact [Unknown]
  - Poor quality device used [Unknown]
  - Device malfunction [Unknown]
  - Device malfunction [Unknown]

NARRATIVE: CASE EVENT DATE: 2020
